FAERS Safety Report 4459061-6 (Version None)
Quarter: 2004Q3

REPORT INFORMATION
  Report Type: 
  Country: None (occurrence: None)
  Receive Date: 20040922
  Receipt Date: 20040922
  Transmission Date: 20050211
  Serious: Yes (Disabling)
  Sender: FDA-Public Use
  Company Number: None

PATIENT
  Age: 56 Year
  Sex: Female
  Weight: 99.7913 kg

DRUGS (1)
  1. LEVOTHYROXINE SODIUM [Suspect]
     Indication: HYPOTHYROIDISM
     Dates: start: 20040903, end: 20040914

REACTIONS (3)
  - HYPERHIDROSIS [None]
  - PALPITATIONS [None]
  - PHARMACEUTICAL PRODUCT COMPLAINT [None]
